FAERS Safety Report 18986068 (Version 3)
Quarter: 2021Q2

REPORT INFORMATION
  Report Type: Spontaneous
  Country: HU (occurrence: HU)
  Receive Date: 20210309
  Receipt Date: 20210426
  Transmission Date: 20210717
  Serious: Yes (Disabling)
  Sender: FDA-Public Use
  Company Number: HU-ROCHE-2785510

PATIENT
  Sex: Female
  Weight: 64 kg

DRUGS (2)
  1. ALECENSA [Suspect]
     Active Substance: ALECTINIB HYDROCHLORIDE
     Indication: NON-SMALL CELL LUNG CANCER
     Dosage: 2 X 300 MG, AT THE BEGINNING: 2 X 450 MG.
     Route: 065
     Dates: start: 2019
  2. LEGALON [Concomitant]
     Active Substance: DIETARY SUPPLEMENT\HERBALS\MILK THISTLE

REACTIONS (2)
  - Nephropathy toxic [Not Recovered/Not Resolved]
  - Pyelonephritis chronic [Not Recovered/Not Resolved]

NARRATIVE: CASE EVENT DATE: 2021
